FAERS Safety Report 17429107 (Version 7)
Quarter: 2020Q2

REPORT INFORMATION
  Report Type: Report from Study
  Country: DE (occurrence: DE)
  Receive Date: 20200218
  Receipt Date: 20200629
  Transmission Date: 20200713
  Serious: Yes (Hospitalization, Other)
  Sender: FDA-Public Use
  Company Number: PHHY2019DE046071

PATIENT
  Age: 80 Year
  Sex: Male
  Weight: 84 kg

DRUGS (14)
  1. TAFINLAR [Suspect]
     Active Substance: DABRAFENIB MESYLATE
     Dosage: 75 MG, BID
     Route: 048
     Dates: start: 20200225, end: 20200310
  2. TRAMETINIB [Suspect]
     Active Substance: TRAMETINIB
     Dosage: 1 MG, QD
     Route: 048
     Dates: start: 20190625, end: 20190924
  3. TAFINLAR [Suspect]
     Active Substance: DABRAFENIB MESYLATE
     Dosage: 150 MG, BID
     Route: 048
     Dates: start: 20180517, end: 20200210
  4. TAFINLAR [Suspect]
     Active Substance: DABRAFENIB MESYLATE
     Dosage: 75 MG, BID
     Route: 048
     Dates: start: 20200211, end: 20200211
  5. TRAMETINIB [Suspect]
     Active Substance: TRAMETINIB
     Indication: METASTATIC MALIGNANT MELANOMA
     Dosage: 2 MG, QD
     Route: 048
     Dates: start: 20180222, end: 20190624
  6. FLUVASTATIN [Concomitant]
     Active Substance: FLUVASTATIN SODIUM
     Indication: ADVERSE EVENT
     Dosage: 40 MG, QD
     Route: 048
  7. IMODIUM [Concomitant]
     Active Substance: LOPERAMIDE HYDROCHLORIDE
     Indication: ADVERSE EVENT
     Dosage: 2 MG, PRN (ONCE)
     Route: 048
     Dates: start: 20180516, end: 20180613
  8. HYDROCHLOROTHIAZIDE. [Concomitant]
     Active Substance: HYDROCHLOROTHIAZIDE
     Indication: ADVERSE EVENT
     Dosage: 12.5 MG, QD
     Route: 048
  9. TAFINLAR [Suspect]
     Active Substance: DABRAFENIB MESYLATE
     Indication: METASTATIC MALIGNANT MELANOMA
     Dosage: 75 MG, BID
     Route: 048
     Dates: start: 20180222, end: 20180516
  10. TORASEMIDE [Concomitant]
     Active Substance: TORSEMIDE
     Indication: ADVERSE EVENT
     Dosage: 10 MG, QD
     Route: 048
  11. TAFINLAR [Suspect]
     Active Substance: DABRAFENIB MESYLATE
     Dosage: 75 MG, BID
     Route: 048
     Dates: start: 20200316, end: 20200330
  12. ACETYLSALICYLIC ACID [Concomitant]
     Active Substance: ASPIRIN
     Indication: ADVERSE EVENT
     Dosage: 100 MG, QD
     Route: 048
     Dates: end: 20181213
  13. PEMBROLIZUMAB. [Concomitant]
     Active Substance: PEMBROLIZUMAB
     Indication: MALIGNANT MELANOMA
     Dosage: 400 MG,ONCE EVERY SIX WEEKS
     Route: 042
     Dates: start: 20200331
  14. VALSARTAN. [Concomitant]
     Active Substance: VALSARTAN
     Indication: ADVERSE EVENT
     Dosage: 160 MG, QD
     Route: 048

REACTIONS (9)
  - Fall [Recovered/Resolved]
  - Brain oedema [Recovering/Resolving]
  - Electrocardiogram QT prolonged [Unknown]
  - Pulmonary hypertension [Not Recovered/Not Resolved]
  - Ejection fraction decreased [Recovered/Resolved]
  - Tricuspid valve incompetence [Not Recovered/Not Resolved]
  - Atrial fibrillation [Not Recovered/Not Resolved]
  - Incorrect dose administered [Unknown]
  - Aortic valve incompetence [Not Recovered/Not Resolved]

NARRATIVE: CASE EVENT DATE: 20180620
